FAERS Safety Report 9232841 (Version 1)
Quarter: 2013Q2

REPORT INFORMATION
  Report Type: Spontaneous
  Country: US (occurrence: None)
  Receive Date: 20130415
  Receipt Date: 20130415
  Transmission Date: 20140414
  Serious: Yes (Life-Threatening)
  Sender: FDA-Public Use
  Company Number: None

PATIENT
  Age: 62 Year
  Sex: Female
  Weight: 63.5 kg

DRUGS (1)
  1. AVELOX [Suspect]
     Indication: INFECTION
     Dates: start: 20130408, end: 20130413

REACTIONS (4)
  - Hypersensitivity [None]
  - Anxiety [None]
  - Arthralgia [None]
  - Pain in extremity [None]
